FAERS Safety Report 19389282 (Version 1)
Quarter: 2021Q2

REPORT INFORMATION
  Report Type: Spontaneous
  Country: SI (occurrence: SI)
  Receive Date: 20210607
  Receipt Date: 20210607
  Transmission Date: 20210717
  Serious: Yes (Hospitalization, Other)
  Sender: FDA-Public Use
  Company Number: SI-JNJFOC-20210613586

PATIENT
  Age: 71 Year
  Sex: Female

DRUGS (12)
  1. XARELTO [Suspect]
     Active Substance: RIVAROXABAN
     Indication: ATRIAL FIBRILLATION
     Dosage: UNK
     Route: 048
  2. ATROPIN [ATROPINE] [Concomitant]
  3. TORECAN [Concomitant]
     Active Substance: THIETHYLPERAZINE MALATE
  4. TENOX [AMLODIPINE BESILATE] [Concomitant]
     Active Substance: AMLODIPINE BESYLATE
     Dosage: UNK
  5. ANALGIN [METAMIZOLE SODIUM] [Concomitant]
  6. DABIGATRAN [Concomitant]
     Active Substance: DABIGATRAN
  7. NOLPAZA [Concomitant]
     Active Substance: PANTOPRAZOLE SODIUM
  8. ONDANSETRON HYDROCHLORIDE. [Concomitant]
     Active Substance: ONDANSETRON HYDROCHLORIDE
  9. ELTROXIN [Concomitant]
     Active Substance: LEVOTHYROXINE
     Dosage: UNK
  10. SIMVACOR [Concomitant]
     Active Substance: SIMVASTATIN
     Dosage: UNK
  11. HELEX [Concomitant]
     Active Substance: ALPRAZOLAM
     Dosage: UNK
  12. CONCOR [Concomitant]
     Active Substance: BISOPROLOL FUMARATE
     Dosage: UNK

REACTIONS (12)
  - Splenic haematoma [Unknown]
  - Abdominal pain upper [Recovered/Resolved]
  - Groin pain [Recovering/Resolving]
  - Normocytic anaemia [Unknown]
  - Musculoskeletal chest pain [Recovering/Resolving]
  - Nausea [Recovering/Resolving]
  - Ileus paralytic [Unknown]
  - Vomiting [Recovering/Resolving]
  - Hypotension [Unknown]
  - Renal neoplasm [Recovering/Resolving]
  - Tumour haemorrhage [Recovering/Resolving]
  - Sinus bradycardia [Recovering/Resolving]

NARRATIVE: CASE EVENT DATE: 202006
